FAERS Safety Report 10439058 (Version 1)
Quarter: 2014Q3

REPORT INFORMATION
  Report Type: Spontaneous
  Country: JP (occurrence: JP)
  Receive Date: 20140908
  Receipt Date: 20140908
  Transmission Date: 20150326
  Serious: Yes (Other)
  Sender: FDA-Public Use
  Company Number: PHHY2014JP105811

PATIENT
  Age: 59 Year
  Sex: Female

DRUGS (1)
  1. NEORAL [Suspect]
     Active Substance: CYCLOSPORINE
     Indication: NONINFECTIVE CONJUNCTIVITIS
     Dosage: 75 MG, DAILY
     Route: 048

REACTIONS (1)
  - Uveitis [Unknown]
